FAERS Safety Report 8863343 (Version 1)
Quarter: 2012Q4

REPORT INFORMATION
  Report Type: 
  Country: US (occurrence: US)
  Receive Date: 20121025
  Receipt Date: 20121025
  Transmission Date: 20130627
  Serious: Yes (Other)
  Sender: FDA-Public Use
  Company Number: US-GLAXOSMITHKLINE-A0998438A

PATIENT
  Age: 67 Year
  Sex: Female

DRUGS (1)
  1. TYKERB [Suspect]
     Indication: PRODUCT USED FOR UNKNOWN INDICATION
     Dosage: 1000MG per day
     Route: 065
     Dates: start: 20120322

REACTIONS (3)
  - Femur fracture [Unknown]
  - Fall [Unknown]
  - Diarrhoea [Unknown]
